FAERS Safety Report 19054220 (Version 2)
Quarter: 2021Q2

REPORT INFORMATION
  Report Type: Spontaneous
  Country: US (occurrence: US)
  Receive Date: 20210325
  Receipt Date: 20210429
  Transmission Date: 20210717
  Serious: Yes (Hospitalization, Other)
  Sender: FDA-Public Use
  Company Number: US-ABBVIE-21K-163-3829173-00

PATIENT
  Age: 57 Year
  Sex: Male
  Weight: 72.64 kg

DRUGS (5)
  1. ALLOPURINOL. [Concomitant]
     Active Substance: ALLOPURINOL
     Indication: GOUT
  2. HUMIRA [Suspect]
     Active Substance: ADALIMUMAB
     Route: 058
     Dates: start: 202101
  3. METOPROLOL SUCCINATE. [Concomitant]
     Active Substance: METOPROLOL SUCCINATE
     Indication: HYPERTENSION
  4. PRILOSEC [Concomitant]
     Active Substance: OMEPRAZOLE MAGNESIUM
     Indication: GASTROOESOPHAGEAL REFLUX DISEASE
  5. HUMIRA [Suspect]
     Active Substance: ADALIMUMAB
     Indication: PSORIATIC ARTHROPATHY
     Route: 058
     Dates: start: 2001, end: 2015

REACTIONS (12)
  - Fatigue [Recovered/Resolved]
  - Unevaluable event [Recovered/Resolved]
  - Post procedural sepsis [Recovered/Resolved with Sequelae]
  - Gastrointestinal neoplasm [Recovered/Resolved]
  - Weight decreased [Recovered/Resolved]
  - Colon neoplasm [Recovered/Resolved]
  - Immunosuppression [Recovered/Resolved]
  - Incorrect dose administered [Unknown]
  - Colon cancer [Recovered/Resolved]
  - Intestinal resection [Recovered/Resolved]
  - Septic shock [Recovered/Resolved]
  - Device issue [Unknown]

NARRATIVE: CASE EVENT DATE: 201512
